FAERS Safety Report 13678988 (Version 1)
Quarter: 2017Q2

REPORT INFORMATION
  Report Type: Spontaneous
  Country: FR (occurrence: FR)
  Receive Date: 20170622
  Receipt Date: 20170622
  Transmission Date: 20170830
  Serious: Yes (Life-Threatening)
  Sender: FDA-Public Use
  Company Number: FR-PFIZER INC-2017269310

PATIENT
  Age: 64 Year
  Sex: Male

DRUGS (9)
  1. CORDARONE [Interacting]
     Active Substance: AMIODARONE HYDROCHLORIDE
     Dosage: 200 MG, DAILY
  2. CLAFORAN [Concomitant]
     Active Substance: CEFOTAXIME SODIUM
     Dosage: 2 G, 3X/DAY (2G / 8 HOURS)
     Dates: start: 20161109
  3. LASILIX [Concomitant]
     Active Substance: FUROSEMIDE
     Dosage: 3 MIU, 3X/DAY (EVERY 8 HOURS)
     Dates: start: 20161110
  4. CORDARONE [Suspect]
     Active Substance: AMIODARONE HYDROCHLORIDE
     Indication: ATRIAL FIBRILLATION
     Dosage: 600 MG, DAILY (3 TABLETS OF CORDARONE 200MG DAILY)
     Route: 048
     Dates: start: 20161110, end: 20161115
  5. KARDEGIC [Concomitant]
     Active Substance: ASPIRIN LYSINE
     Dosage: 75 MG, UNK
  6. DILTIAZEM HYDROCHLORIDE. [Interacting]
     Active Substance: DILTIAZEM HYDROCHLORIDE
     Dosage: 120 MG, 1X/DAY
     Route: 048
  7. BISOCE [Interacting]
     Active Substance: BISOPROLOL
     Indication: MYOCARDIAL ISCHAEMIA
     Dosage: 1.25 MG, 2X/DAY
     Route: 048
     Dates: start: 20161115
  8. LOVENOX [Concomitant]
     Active Substance: ENOXAPARIN SODIUM
     Dosage: 8000 IU, 2X/DAY (EVERY 12 HOURS)
     Dates: start: 20161110
  9. ROVAMYCINE [Interacting]
     Active Substance: SPIRAMYCIN
     Indication: LUNG DISORDER
     Dosage: 3 MIU, 3X/DAY (PER 8 HOURS)
     Route: 042
     Dates: start: 20161110, end: 20161115

REACTIONS (3)
  - Torsade de pointes [Recovered/Resolved]
  - Cardio-respiratory arrest [Recovered/Resolved]
  - Drug interaction [Unknown]

NARRATIVE: CASE EVENT DATE: 20161115
